FAERS Safety Report 24417277 (Version 1)
Quarter: 2024Q4

REPORT INFORMATION
  Report Type: Spontaneous
  Country: US (occurrence: None)
  Receive Date: 20241009
  Receipt Date: 20241009
  Transmission Date: 20250115
  Serious: Yes (Hospitalization, Other)
  Sender: Public
  Company Number: None

PATIENT
  Age: 55 Year
  Sex: Male
  Weight: 73.8 kg

DRUGS (15)
  1. RANOLAZINE [Suspect]
     Active Substance: RANOLAZINE
     Indication: Angina pectoris
     Dosage: FREQUENCY : TWICE A DAY;?
     Route: 048
     Dates: start: 20240926, end: 20241007
  2. TOPROL XL [Concomitant]
     Active Substance: METOPROLOL SUCCINATE
  3. NORVASC [Concomitant]
     Active Substance: AMLODIPINE BESYLATE
  4. OXYBUTYNIN [Concomitant]
     Active Substance: OXYBUTYNIN
  5. VIBERZI [Concomitant]
     Active Substance: ELUXADOLINE
  6. SEMAGLUTIDE [Concomitant]
     Active Substance: SEMAGLUTIDE
  7. ALPRAZOLAM [Concomitant]
     Active Substance: ALPRAZOLAM
  8. GABAPENTIN [Concomitant]
     Active Substance: GABAPENTIN
  9. TADALAFIL [Concomitant]
     Active Substance: TADALAFIL
  10. NITROGLYCERIN [Concomitant]
     Active Substance: NITROGLYCERIN
  11. BUDESONIDE [Concomitant]
     Active Substance: BUDESONIDE
  12. ASPIRIN [Concomitant]
     Active Substance: ASPIRIN
  13. OMEPRAZOLE [Concomitant]
     Active Substance: OMEPRAZOLE
  14. NAPROXEN [Concomitant]
     Active Substance: NAPROXEN
  15. IBUPROFEN [Concomitant]
     Active Substance: IBUPROFEN

REACTIONS (9)
  - Angina pectoris [None]
  - Dizziness [None]
  - Syncope [None]
  - Dyspnoea [None]
  - Nausea [None]
  - Burning sensation [None]
  - Paraesthesia [None]
  - Tremor [None]
  - Tremor [None]

NARRATIVE: CASE EVENT DATE: 20241006
